FAERS Safety Report 4941948-9 (Version None)
Quarter: 2006Q1

REPORT INFORMATION
  Report Type: 
  Country: None (occurrence: None)
  Receive Date: 20060313
  Receipt Date: 20060208
  Transmission Date: 20060701
  Serious: Yes (Death)
  Sender: FDA-Public Use
  Company Number: US-MERCK-0602USA02271

PATIENT
  Age: 61 Year
  Sex: Female

DRUGS (11)
  1. VIOXX [Suspect]
     Route: 048
     Dates: start: 20021101, end: 20040401
  2. KLOR-CON [Concomitant]
     Route: 065
  3. AMITRIPTYLINE HYDROCHLORIDE [Concomitant]
     Route: 065
  4. LIPITOR [Concomitant]
     Route: 065
  5. TOPROL-XL [Concomitant]
     Route: 065
  6. FUROSEMIDE [Concomitant]
     Route: 065
  7. NORVASC [Concomitant]
     Route: 065
  8. LEVOTHROID [Concomitant]
     Route: 065
  9. ZOLOFT [Concomitant]
     Route: 065
  10. ACTOS [Concomitant]
     Route: 065
  11. [THERAPY UNSPECIFIED] [Concomitant]
     Route: 065

REACTIONS (1)
  - MYOCARDIAL INFARCTION [None]
